FAERS Safety Report 4297484-9 (Version None)
Quarter: 2004Q1

REPORT INFORMATION
  Report Type: 
  Country: None (occurrence: None)
  Receive Date: 20040218
  Receipt Date: 20031204
  Transmission Date: 20041129
  Serious: Yes (Other)
  Sender: FDA-Public Use
  Company Number: PT-GLAXOSMITHKLINE-B0316728A

PATIENT
  Age: 56 Year
  Sex: Female

DRUGS (6)
  1. CARVEDILOL [Suspect]
     Dosage: 12.5MG PER DAY
     Route: 048
     Dates: start: 19980401, end: 19981201
  2. CARVEDILOL [Suspect]
     Dosage: 25MG PER DAY
     Route: 048
     Dates: start: 19981201, end: 19990901
  3. SIMVASTATIN [Concomitant]
     Route: 065
     Dates: start: 19960615
  4. MEDROGESTONE [Concomitant]
     Route: 065
  5. ESTROGEN [Concomitant]
     Route: 065
  6. BISOPROLOL [Concomitant]
     Dosage: 5MG PER DAY
     Route: 065
     Dates: start: 19990301

REACTIONS (2)
  - INFLUENZA LIKE ILLNESS [None]
  - URINARY INCONTINENCE [None]
